FAERS Safety Report 4888920-5 (Version None)
Quarter: 2006Q1

REPORT INFORMATION
  Report Type: 
  Country: None (occurrence: None)
  Receive Date: 20060123
  Receipt Date: 20060113
  Transmission Date: 20060701
  Serious: Yes (Hospitalization)
  Sender: FDA-Public Use
  Company Number: JP-MERCK-0601USA01906

PATIENT
  Age: 54 Year
  Sex: Female

DRUGS (6)
  1. DECADRON [Suspect]
     Indication: ANGIOIMMUNOBLASTIC T-CELL LYMPHOMA
     Route: 048
     Dates: start: 20050826
  2. NEORAL [Concomitant]
     Route: 048
     Dates: start: 20050827
  3. URSO [Concomitant]
     Route: 048
     Dates: start: 20050620
  4. OLMESARTAN MEDOXOMIL [Concomitant]
     Route: 048
     Dates: start: 20050909
  5. PEPCID [Concomitant]
     Route: 048
     Dates: start: 20050624
  6. ADALAT [Concomitant]
     Route: 048
     Dates: start: 20050104

REACTIONS (2)
  - LIVER DISORDER [None]
  - OEDEMA [None]
